FAERS Safety Report 11184996 (Version 1)
Quarter: 2015Q2

REPORT INFORMATION
  Report Type: Spontaneous
  Country: US (occurrence: US)
  Receive Date: 20150612
  Receipt Date: 20150612
  Transmission Date: 20150821
  Serious: No
  Sender: FDA-Public Use
  Company Number: US-CELGENEUS-USA-2015050845

PATIENT
  Sex: Female

DRUGS (6)
  1. OTEZLA [Suspect]
     Active Substance: APREMILAST
     Indication: PSORIASIS
     Dosage: 60 MILLIGRAM
     Route: 048
     Dates: start: 20150424
  2. CALCIUM [Concomitant]
     Active Substance: CALCIUM
     Indication: PRODUCT USED FOR UNKNOWN INDICATION
     Route: 065
  3. TRIAMTERENE AND HYDROCHLOROTHIAZIDE [Concomitant]
     Active Substance: HYDROCHLOROTHIAZIDE\TRIAMTERENE
     Indication: PRODUCT USED FOR UNKNOWN INDICATION
     Route: 065
  4. GLUCOSAMINE [Concomitant]
     Active Substance: GLUCOSAMINE
     Indication: PRODUCT USED FOR UNKNOWN INDICATION
     Route: 065
  5. VITAMINS [Concomitant]
     Active Substance: VITAMINS
     Indication: PRODUCT USED FOR UNKNOWN INDICATION
     Route: 065
  6. ALEVE [Concomitant]
     Active Substance: NAPROXEN SODIUM
     Indication: PRODUCT USED FOR UNKNOWN INDICATION
     Route: 065

REACTIONS (2)
  - Headache [Unknown]
  - Diarrhoea [Unknown]
